FAERS Safety Report 12765554 (Version 1)
Quarter: 2016Q3

REPORT INFORMATION
  Report Type: Spontaneous
  Country: US (occurrence: US)
  Receive Date: 20160921
  Receipt Date: 20160921
  Transmission Date: 20161109
  Serious: No
  Sender: FDA-Public Use
  Company Number: US-ASTRAZENECA-2016SE77976

PATIENT

DRUGS (29)
  1. LYRICA [Suspect]
     Active Substance: PREGABALIN
     Indication: DIABETES MELLITUS
     Route: 048
     Dates: start: 20160228
  2. LYRICA [Suspect]
     Active Substance: PREGABALIN
     Indication: ANXIETY
     Route: 048
     Dates: start: 20160228
  3. LYRICA [Suspect]
     Active Substance: PREGABALIN
     Indication: ANXIETY
     Dosage: 1 CAPSULE 3 TIMES DAILY, AS NEEDED
     Route: 048
  4. HYDROCODONE [Concomitant]
     Active Substance: HYDROCODONE
     Indication: RHEUMATOID ARTHRITIS
     Dosage: 1.0DF EVERY 8 - 12 HOURS
     Route: 048
     Dates: start: 20160311
  5. FREESTYLE LITE TEST IN VITRO STRIP [Concomitant]
     Indication: DIABETES MELLITUS
     Dates: start: 20160311
  6. LISINOPRIL. [Concomitant]
     Active Substance: LISINOPRIL
     Indication: ESSENTIAL HYPERTENSION
     Route: 048
  7. CRESTOR [Concomitant]
     Active Substance: ROSUVASTATIN CALCIUM
     Indication: HYPERCHOLESTEROLAEMIA
     Route: 048
     Dates: start: 20160426
  8. LYRICA [Suspect]
     Active Substance: PREGABALIN
     Indication: DIABETES MELLITUS
     Dosage: 1 CAPSULE 3 TIMES DAILY, AS NEEDED
     Route: 048
  9. HYDROCODONE [Concomitant]
     Active Substance: HYDROCODONE
     Indication: ARTHRALGIA
     Dosage: 1.0DF EVERY 8 - 12 HOURS
     Route: 048
     Dates: start: 20160311
  10. BD PEN [Concomitant]
     Indication: DIABETES MELLITUS
     Dates: start: 20160228
  11. GABAPENTIN. [Concomitant]
     Active Substance: GABAPENTIN
     Indication: DIABETES MELLITUS
     Route: 048
     Dates: start: 20160311
  12. GABAPENTIN. [Concomitant]
     Active Substance: GABAPENTIN
     Indication: NEUROPATHY PERIPHERAL
     Route: 048
     Dates: start: 20160311
  13. LYRICA [Suspect]
     Active Substance: PREGABALIN
     Indication: NEUROPATHY PERIPHERAL
     Route: 048
     Dates: start: 20160228
  14. LYRICA [Suspect]
     Active Substance: PREGABALIN
     Indication: NEUROPATHY PERIPHERAL
     Dosage: 1 CAPSULE 3 TIMES DAILY, AS NEEDED
     Route: 048
  15. HYDROCODONE [Concomitant]
     Active Substance: HYDROCODONE
     Indication: BACK PAIN
     Dosage: 1.0DF EVERY 8 - 12 HOURS
     Route: 048
     Dates: start: 20160311
  16. BD PEN [Concomitant]
     Indication: DIABETES MELLITUS
     Dosage: INJECT 4 TIMES A DAY
     Dates: start: 20160411
  17. BAYER MICROLET LANCETS MISCELLANEOUS [Concomitant]
     Indication: DIABETES MELLITUS
     Dosage: INJECT 4, DAILY
  18. PREDNISONE. [Suspect]
     Active Substance: PREDNISONE
     Route: 065
  19. BAYER MICROLET LANCETS MISCELLANEOUS [Concomitant]
     Indication: DIABETES MELLITUS
     Dosage: TEST 4, DAILY
     Dates: start: 20160315
  20. LEVEMIR [Concomitant]
     Active Substance: INSULIN DETEMIR
     Indication: DIABETES MELLITUS
     Dosage: 25 UNITS, AT NIGHT
     Dates: start: 20160311
  21. XIGDUO XR [Suspect]
     Active Substance: DAPAGLIFLOZIN PROPANEDIOL\METFORMIN HYDROCHLORIDE
     Route: 048
  22. OMEPRAZOLE. [Concomitant]
     Active Substance: OMEPRAZOLE
     Indication: GASTROOESOPHAGEAL REFLUX DISEASE
     Route: 048
     Dates: start: 20130301
  23. BAYER CONTOUR NEXT TEST IN VITRO STRIP [Concomitant]
     Indication: DIABETES MELLITUS
     Dosage: TEST TWO TIMES DAILY
     Dates: start: 20160223
  24. PROAIR HFA [Concomitant]
     Active Substance: ALBUTEROL SULFATE
     Indication: ROUTINE HEALTH MAINTENANCE
     Dosage: INHALE 1 TO 2 PUFFS EVERY 4 TO 6 HOURS AS NEEDED
     Route: 055
     Dates: start: 20141023
  25. TESSALON [Suspect]
     Active Substance: BENZONATATE
     Route: 065
  26. BD PEN [Concomitant]
     Indication: DIABETES MELLITUS
     Dates: start: 20160311
  27. BD PEN [Concomitant]
     Indication: DIABETES MELLITUS
     Dosage: INJECT 4 TIMES A DAY
     Dates: start: 20160517
  28. NOVOLOG [Concomitant]
     Active Substance: INSULIN ASPART
     Indication: DIABETES MELLITUS
     Dosage: 10 UNITS WITH MEALS
     Dates: start: 20160311
  29. ERGOCALCIFEROL. [Concomitant]
     Active Substance: ERGOCALCIFEROL
     Indication: VITAMIN D DEFICIENCY
     Route: 048
     Dates: start: 20160426

REACTIONS (1)
  - Drug hypersensitivity [Unknown]
